FAERS Safety Report 9894182 (Version 1)
Quarter: 2014Q1

REPORT INFORMATION
  Report Type: Spontaneous
  Country: FR (occurrence: FR)
  Receive Date: 20140213
  Receipt Date: 20140213
  Transmission Date: 20141002
  Serious: Yes (Hospitalization)
  Sender: FDA-Public Use
  Company Number: PHHY2014FR017225

PATIENT
  Age: 58 Year
  Sex: Female

DRUGS (15)
  1. NEORAL [Suspect]
     Dosage: 75 MG, BID
     Route: 048
     Dates: start: 200405
  2. NEORAL [Suspect]
     Dosage: 125 MG, DAILY
  3. ROVALCYTE [Suspect]
     Route: 048
     Dates: start: 2004, end: 20040816
  4. ROVALCYTE [Suspect]
     Dosage: 1 DF, 2 TIMES WEEKLY
     Route: 048
     Dates: start: 20040816, end: 20040901
  5. ROVALCYTE [Suspect]
     Route: 048
     Dates: start: 20040901, end: 20040906
  6. ZELITREX [Suspect]
     Dosage: 4 DF, TID
     Route: 048
     Dates: start: 20040906, end: 20040908
  7. CELLCEPT [Suspect]
     Dosage: 500 MG, UNK
     Route: 048
     Dates: start: 200405, end: 20040812
  8. CELLCEPT [Suspect]
     Dosage: 500 MG, UNK
     Dates: start: 20040812
  9. CLAMOXYL [Suspect]
     Dosage: 1 G, BID
     Route: 048
     Dates: end: 20040908
  10. INEXIUM [Suspect]
     Dosage: UNK UKN, UNK
     Route: 048
     Dates: end: 20040906
  11. SOLU-PRED [Concomitant]
  12. PREVISCAN [Concomitant]
     Dosage: UNK UKN, UNK
     Dates: end: 20040909
  13. LEVOTHYROX [Concomitant]
  14. CACIT VITAMINE D3 [Concomitant]
  15. LEXOMIL [Concomitant]

REACTIONS (2)
  - Agranulocytosis [Recovered/Resolved]
  - Neutropenia [Recovered/Resolved]
